FAERS Safety Report 6162675-9 (Version None)
Quarter: 2009Q2

REPORT INFORMATION
  Report Type: 
  Country: None (occurrence: None)
  Receive Date: 20090421
  Receipt Date: 20090128
  Transmission Date: 20091009
  Serious: No
  Sender: FDA-Public Use
  Company Number: US-ASTRAZENECA-2009UW02457

PATIENT
  Age: 63 Year
  Sex: Male

DRUGS (2)
  1. CASODEX [Suspect]
     Indication: PROSTATE CANCER
     Route: 048
  2. LUPRON [Suspect]
     Indication: PROSTATE CANCER
     Dates: start: 20080801

REACTIONS (6)
  - ASTHENIA [None]
  - BREAST SWELLING [None]
  - DIZZINESS [None]
  - LIBIDO DECREASED [None]
  - PRURITUS [None]
  - RASH [None]
